FAERS Safety Report 4475771-9 (Version None)
Quarter: 2004Q4

REPORT INFORMATION
  Report Type: 
  Country: None (occurrence: None)
  Receive Date: 20041015
  Receipt Date: 20041005
  Transmission Date: 20050328
  Serious: Yes (Death)
  Sender: FDA-Public Use
  Company Number: JPKYO-S-20040034

PATIENT
  Age: 70 Year
  Sex: Male

DRUGS (2)
  1. NAVELBINE [Suspect]
     Route: 042
     Dates: start: 20040911
  2. GEMZAR [Suspect]
     Route: 042
     Dates: start: 20040911

REACTIONS (2)
  - PNEUMONIA [None]
  - SHOCK HAEMORRHAGIC [None]
